FAERS Safety Report 23920098 (Version 1)
Quarter: 2024Q2

REPORT INFORMATION
  Report Type: Spontaneous
  Country: US (occurrence: None)
  Receive Date: 20240530
  Receipt Date: 20240530
  Transmission Date: 20240715
  Serious: No
  Sender: FDA-Public Use
  Company Number: None

PATIENT

DRUGS (3)
  1. ALLOPURINOL [Suspect]
     Active Substance: ALLOPURINOL
  2. LISINOPRIL [Suspect]
     Active Substance: LISINOPRIL
  3. LOSARTAN [Suspect]
     Active Substance: LOSARTAN

REACTIONS (3)
  - Wrong patient received product [None]
  - Wrong product administered [None]
  - Malaise [None]
